FAERS Safety Report 10775665 (Version 1)
Quarter: 2015Q1

REPORT INFORMATION
  Report Type: Other
  Country: US (occurrence: US)
  Receive Date: 20150209
  Receipt Date: 20150209
  Transmission Date: 20150721
  Serious: Yes (Death)
  Sender: FDA-Public Use
  Company Number: US-FRI-1000074301

PATIENT
  Age: 30 Year
  Sex: Female

DRUGS (5)
  1. CHLORPROMAZINE [Suspect]
     Active Substance: CHLORPROMAZINE
  2. QUETIAPINE [Suspect]
     Active Substance: QUETIAPINE
  3. MORPHINE [Suspect]
     Active Substance: MORPHINE
  4. CITALOPRAM [Suspect]
     Active Substance: CITALOPRAM HYDROBROMIDE
  5. TRAZODONE [Suspect]
     Active Substance: TRAZODONE HYDROCHLORIDE

REACTIONS (2)
  - Death [Fatal]
  - Cardio-respiratory arrest [Fatal]
